FAERS Safety Report 8773751 (Version 2)
Quarter: 2012Q4

REPORT INFORMATION
  Report Type: 
  Country: CN (occurrence: CN)
  Receive Date: 20120907
  Receipt Date: 20121106
  Transmission Date: 20130627
  Serious: Yes (Death, Hospitalization, Other)
  Sender: FDA-Public Use
  Company Number: CN-ROCHE-1116225

PATIENT
  Age: 67 Year
  Sex: Male
  Weight: 51 kg

DRUGS (10)
  1. MABTHERA [Suspect]
     Indication: MANTLE CELL LYMPHOMA
     Route: 041
     Dates: start: 20070322, end: 20070830
  2. CYCLOPHOSPHAMIDE [Suspect]
     Indication: MANTLE CELL LYMPHOMA
     Route: 041
     Dates: start: 20070323, end: 20070831
  3. EPIRUBICIN [Suspect]
     Indication: MANTLE CELL LYMPHOMA
     Route: 041
     Dates: start: 20070323, end: 20070831
  4. VINCRISTINE [Suspect]
     Indication: MANTLE CELL LYMPHOMA
     Route: 041
     Dates: start: 20070323, end: 20070831
  5. PREDNISONE [Suspect]
     Indication: MANTLE CELL LYMPHOMA
     Route: 048
     Dates: start: 20070323, end: 20070904
  6. ROCEPHIN [Suspect]
     Indication: ANTI-INFECTIVE THERAPY
     Route: 041
     Dates: start: 20080104, end: 20080104
  7. ROCEPHIN [Suspect]
     Route: 040
     Dates: start: 20080104
  8. PHENERGAN [Concomitant]
     Route: 030
     Dates: start: 20070322, end: 20070830
  9. INDOMETACIN [Concomitant]
     Route: 054
     Dates: start: 20070322, end: 20070830
  10. GRANISETRON [Concomitant]
     Indication: PROPHYLAXIS OF NAUSEA AND VOMITING
     Route: 041
     Dates: start: 20070323, end: 20070831

REACTIONS (9)
  - Cardiac arrest [Fatal]
  - Hepatitis B [Fatal]
  - Hepatorenal syndrome [Fatal]
  - Respiratory arrest [Fatal]
  - Nausea [Unknown]
  - Blood bilirubin increased [Unknown]
  - Prothrombin time prolonged [Unknown]
  - Ascites [Unknown]
  - Infection [Unknown]
